FAERS Safety Report 21091134 (Version 1)
Quarter: 2022Q3

REPORT INFORMATION
  Report Type: Spontaneous
  Country: US (occurrence: US)
  Receive Date: 20220716
  Receipt Date: 20220716
  Transmission Date: 20221027
  Serious: No
  Sender: FDA-Public Use
  Company Number: US-NOVARTISTESTPH-NVSC2022US160298

PATIENT

DRUGS (3)
  1. NETSPOT [Suspect]
     Active Substance: DOTATATE GALLIUM GA-68
     Indication: Product used for unknown indication
     Dosage: UNK
     Route: 065
  2. NETSPOT [Suspect]
     Active Substance: DOTATATE GALLIUM GA-68
     Dosage: UNK
     Route: 065
  3. NETSPOT [Suspect]
     Active Substance: DOTATATE GALLIUM GA-68
     Dosage: UNK
     Route: 065

REACTIONS (1)
  - Scan gallium abnormal [Unknown]
